FAERS Safety Report 19549610 (Version 1)
Quarter: 2021Q3

REPORT INFORMATION
  Report Type: Spontaneous
  Country: DK (occurrence: DK)
  Receive Date: 20210714
  Receipt Date: 20210714
  Transmission Date: 20211014
  Serious: Yes (Hospitalization)
  Sender: FDA-Public Use
  Company Number: DK-JUBILANT CADISTA PHARMACEUTICALS-2021JUB00204

PATIENT
  Age: 66 Year
  Sex: Female

DRUGS (3)
  1. ITRACONAZOLE. [Suspect]
     Active Substance: ITRACONAZOLE
     Indication: ONYCHOMYCOSIS
     Dosage: 200 MG, 1X/DAY REPEATED 3 MONTHS TREATMENT COURSES
     Route: 048
  2. AMOROLFINE NAIL VARNISH [Concomitant]
     Indication: ONYCHOMYCOSIS
     Route: 061
  3. ITRACONAZOLE. [Suspect]
     Active Substance: ITRACONAZOLE
     Dosage: 100 MG, 2X/DAY
     Route: 048
     Dates: start: 201909, end: 202004

REACTIONS (1)
  - Pseudoaldosteronism [Recovered/Resolved]

NARRATIVE: CASE EVENT DATE: 202004
